FAERS Safety Report 6165338-9 (Version None)
Quarter: 2009Q2

REPORT INFORMATION
  Report Type: 
  Country: None (occurrence: None)
  Receive Date: 20090423
  Receipt Date: 20090414
  Transmission Date: 20091009
  Serious: Yes (Hospitalization)
  Sender: FDA-Public Use
  Company Number: US-BAXTER-2009BH004696

PATIENT
  Age: 79 Year
  Sex: Female

DRUGS (3)
  1. PROSOL 20% SULFITE FREE [Suspect]
     Indication: INTESTINAL FISTULA
     Route: 042
     Dates: start: 20090212, end: 20090224
  2. PROSOL 20% SULFITE FREE [Suspect]
     Indication: MALNUTRITION
     Route: 042
     Dates: start: 20090212, end: 20090224
  3. AMINOSYN [Concomitant]
     Indication: DRUG USE FOR UNKNOWN INDICATION
     Route: 065

REACTIONS (3)
  - CHILLS [None]
  - NIGHT SWEATS [None]
  - PYREXIA [None]
